FAERS Safety Report 19074428 (Version 3)
Quarter: 2021Q2

REPORT INFORMATION
  Report Type: Spontaneous
  Country: DE (occurrence: DE)
  Receive Date: 20210330
  Receipt Date: 20210421
  Transmission Date: 20210717
  Serious: Yes (Other)
  Sender: FDA-Public Use
  Company Number: NVSC2021DE029695

PATIENT
  Sex: Male

DRUGS (6)
  1. VALSARTAN ? 1 A PHARMA [Suspect]
     Active Substance: VALSARTAN
     Dosage: 1 DF, QD (1?0?0)
     Route: 048
     Dates: start: 20210114, end: 20210115
  2. DIOVAN [Suspect]
     Active Substance: VALSARTAN
     Indication: PRODUCT USED FOR UNKNOWN INDICATION
     Dosage: 0.5 DF, BID (? ? 0 ? ? )
     Route: 065
  3. VALSARTAN ? 1 A PHARMA [Suspect]
     Active Substance: VALSARTAN
     Dosage: 1.5 DF (1?0?1/2 )
     Route: 048
     Dates: start: 20210113, end: 20210113
  4. VALSARTAN ? 1 A PHARMA [Suspect]
     Active Substance: VALSARTAN
     Indication: HYPERTENSION
     Dosage: 1 DF, QD (1?0?0), 16 TABLETS
     Route: 048
     Dates: start: 20201220, end: 20210112
  5. VALSARTAN ? 1 A PHARMA [Suspect]
     Active Substance: VALSARTAN
     Dosage: 1 DF, QD (1?0?0)
     Route: 048
     Dates: start: 20210116
  6. AMLODIPINE [Concomitant]
     Active Substance: AMLODIPINE BESYLATE
     Indication: PRODUCT USED FOR UNKNOWN INDICATION
     Dosage: 1 DF, QD
     Route: 048

REACTIONS (3)
  - Blood pressure fluctuation [Recovering/Resolving]
  - Blood pressure increased [Recovering/Resolving]
  - Restlessness [Unknown]

NARRATIVE: CASE EVENT DATE: 202012
